FAERS Safety Report 5952760-6 (Version None)
Quarter: 2008Q4

REPORT INFORMATION
  Report Type: 
  Country: None (occurrence: None)
  Receive Date: 20081114
  Receipt Date: 20081107
  Transmission Date: 20090506
  Serious: Yes (Other)
  Sender: FDA-Public Use
  Company Number: FR-B.I. PHARMACEUTICALS,INC./RIDGEFIELD-2008-FF-00816FF

PATIENT

DRUGS (1)
  1. CATAPRESSAN [Suspect]
     Indication: CATARACT
     Dosage: .075MG
     Route: 048

REACTIONS (1)
  - ENDOPHTHALMITIS [None]
